FAERS Safety Report 12581173 (Version 1)
Quarter: 2016Q3

REPORT INFORMATION
  Report Type: Spontaneous
  Country: US (occurrence: US)
  Receive Date: 20160721
  Receipt Date: 20160721
  Transmission Date: 20161109
  Serious: Yes (Hospitalization)
  Sender: FDA-Public Use
  Company Number: US-BRISTOL-MYERS SQUIBB COMPANY-BMS-2016-058691

PATIENT
  Age: 49 Year
  Sex: Male

DRUGS (1)
  1. OPDIVO [Suspect]
     Active Substance: NIVOLUMAB
     Indication: LUNG NEOPLASM MALIGNANT
     Dosage: 6 UNK, UNK
     Route: 042

REACTIONS (3)
  - Psoriasis [Unknown]
  - Synovitis [Unknown]
  - Aspiration joint [Recovering/Resolving]

NARRATIVE: CASE EVENT DATE: 20160712
